FAERS Safety Report 14583082 (Version 1)
Quarter: 2018Q1

REPORT INFORMATION
  Report Type: Spontaneous
  Country: RU (occurrence: RU)
  Receive Date: 20180228
  Receipt Date: 20180228
  Transmission Date: 20180509
  Serious: Yes (Hospitalization, Other)
  Sender: FDA-Public Use
  Company Number: RU-ASTRAZENECA-2018SE23591

PATIENT
  Age: 70 Year
  Sex: Female
  Weight: 80 kg

DRUGS (9)
  1. GLUCOPHAGE [Concomitant]
     Active Substance: METFORMIN HYDROCHLORIDE
  2. GALVUS MET [Concomitant]
     Active Substance: METFORMIN HYDROCHLORIDE\VILDAGLIPTIN
  3. PRESTARIUM [Concomitant]
     Active Substance: PERINDOPRIL
  4. TRICOR [Concomitant]
     Active Substance: FENOFIBRATE
  5. PLAVIX [Concomitant]
     Active Substance: CLOPIDOGREL BISULFATE
  6. DIABETON [Concomitant]
     Active Substance: GLICLAZIDE
  7. NEBILET [Concomitant]
     Active Substance: NEBIVOLOL
  8. FORXIGA [Suspect]
     Active Substance: DAPAGLIFLOZIN
     Indication: TYPE 2 DIABETES MELLITUS
     Route: 048
  9. THROMBO ASS [Concomitant]
     Active Substance: ASPIRIN

REACTIONS (4)
  - Bradycardia [Recovered/Resolved]
  - Coronary artery thrombosis [Recovered/Resolved]
  - Blood pressure decreased [Recovered/Resolved]
  - Coronary artery occlusion [Recovered/Resolved]

NARRATIVE: CASE EVENT DATE: 201711
